FAERS Safety Report 7597227-7 (Version None)
Quarter: 2011Q3

REPORT INFORMATION
  Report Type: 
  Country: None (occurrence: None)
  Receive Date: 20110708
  Receipt Date: 20101025
  Transmission Date: 20111222
  Serious: No
  Sender: FDA-Public Use
  Company Number: US-GLAXOSMITHKLINE-A0888653A

PATIENT
  Sex: Female

DRUGS (8)
  1. NEURONTIN [Concomitant]
  2. PAIN MEDICATION [Concomitant]
  3. FLOVENT [Suspect]
     Indication: ASTHMA
     Dosage: 1PUFF TWICE PER DAY
     Route: 055
  4. HYDROCHLOROTHIAZIDE [Concomitant]
  5. POTASSIUM [Concomitant]
  6. MUSCLE RELAXER [Concomitant]
  7. PROVENTIL [Concomitant]
  8. CADUET [Concomitant]

REACTIONS (1)
  - CANDIDIASIS [None]
